FAERS Safety Report 11784012 (Version 1)
Quarter: 2015Q4

REPORT INFORMATION
  Report Type: Spontaneous
  Country: DE (occurrence: DE)
  Receive Date: 20151128
  Receipt Date: 20151128
  Transmission Date: 20160305
  Serious: Yes (Hospitalization)
  Sender: FDA-Public Use
  Company Number: GXKR2015DE005071

PATIENT
  Age: 80 Year
  Sex: Male

DRUGS (2)
  1. XARELTO [Interacting]
     Active Substance: RIVAROXABAN
     Indication: ATRIAL FIBRILLATION
  2. DICLO SL 1A PHARMA [Suspect]
     Active Substance: DICLOFENAC SODIUM
     Indication: ARTHRALGIA
     Dosage: UNK UKN, UNK
     Route: 048
     Dates: start: 20151103

REACTIONS (7)
  - Exercise tolerance decreased [Not Recovered/Not Resolved]
  - Diverticulitis [Unknown]
  - Gastrointestinal haemorrhage [Unknown]
  - Asthenia [Not Recovered/Not Resolved]
  - Haemorrhage [Unknown]
  - Haematoma [Unknown]
  - Iron deficiency anaemia [Unknown]
